FAERS Safety Report 7578352-3 (Version None)
Quarter: 2011Q2

REPORT INFORMATION
  Report Type: 
  Country: None (occurrence: None)
  Receive Date: 20110621
  Receipt Date: 20110610
  Transmission Date: 20111010
  Serious: Yes (Other)
  Sender: FDA-Public Use
  Company Number: 2011SP027555

PATIENT

DRUGS (3)
  1. RIBAVIRIN [Suspect]
     Indication: HEPATITIS C
     Dosage: PO
     Route: 048
  2. INTRON A [Suspect]
     Indication: HEPATITIS C
     Dosage: 6 MIU;IM
     Route: 030
  3. PEG-INTRON [Suspect]
     Indication: HEPATITIS C
     Dosage: SC
     Route: 058

REACTIONS (4)
  - RETINOPATHY [None]
  - DEPRESSION [None]
  - DELIRIUM [None]
  - THROMBOCYTOPENIA [None]
